FAERS Safety Report 13365803 (Version 1)
Quarter: 2017Q1

REPORT INFORMATION
  Report Type: Spontaneous
  Country: US (occurrence: US)
  Receive Date: 20170323
  Receipt Date: 20170323
  Transmission Date: 20170429
  Serious: Yes (Hospitalization, Other)
  Sender: FDA-Public Use
  Company Number: US-WARNER CHILCOTT-2016-002325

PATIENT
  Age: 62 Year
  Sex: Female
  Weight: 64.4 kg

DRUGS (9)
  1. ESTRACE [Suspect]
     Active Substance: ESTRADIOL
     Indication: BLADDER DISORDER
     Dosage: UNK UNK, UNKNOWN
     Route: 061
     Dates: start: 201609, end: 201610
  2. XANAX [Concomitant]
     Active Substance: ALPRAZOLAM
     Indication: PANIC ATTACK
  3. ESTRACE [Suspect]
     Active Substance: ESTRADIOL
     Indication: URETHRAL DISORDER
     Dosage: UNK, THREE TIMES A WEEK ON THE INSIDE OF HER VAGINA NEAR HER URETHRA
     Route: 067
     Dates: start: 2010
  4. SYNTHROID [Concomitant]
     Active Substance: LEVOTHYROXINE SODIUM
     Dosage: 0.88 MG, QD
     Route: 048
  5. XANAX [Concomitant]
     Active Substance: ALPRAZOLAM
     Indication: ANXIETY
     Dosage: 2 MG, PRN
     Route: 048
  6. PREMARIN [Concomitant]
     Active Substance: ESTROGENS, CONJUGATED
     Indication: BLADDER DISORDER
     Dosage: UNK
     Route: 061
     Dates: start: 201610
  7. LISINOPRIL. [Concomitant]
     Active Substance: LISINOPRIL
     Indication: HYPERTENSION
     Dosage: 5 MG, UNK
     Route: 048
  8. ESTRACE [Suspect]
     Active Substance: ESTRADIOL
     Indication: MENOPAUSE
  9. PREMARIN [Concomitant]
     Active Substance: ESTROGENS, CONJUGATED
     Indication: MENOPAUSE

REACTIONS (6)
  - Fatigue [Not Recovered/Not Resolved]
  - Urinary retention [Recovered/Resolved]
  - Discomfort [Not Recovered/Not Resolved]
  - Urinary retention [Recovered/Resolved]
  - Renal disorder [Not Recovered/Not Resolved]
  - Product use issue [Unknown]

NARRATIVE: CASE EVENT DATE: 2010
